FAERS Safety Report 15264423 (Version 1)
Quarter: 2018Q3

REPORT INFORMATION
  Report Type: Other
  Country: JP (occurrence: JP)
  Receive Date: 20180810
  Receipt Date: 20180810
  Transmission Date: 20181010
  Serious: Yes (Hospitalization)
  Sender: FDA-Public Use
  Company Number: JP-ACTELION-A-CH2018-177127

PATIENT
  Age: 9 Year
  Sex: Male

DRUGS (3)
  1. NITRIC OXIDE. [Concomitant]
     Active Substance: NITRIC OXIDE
     Route: 055
  2. EPOPROSTENOL SODIUM. [Suspect]
     Active Substance: EPOPROSTENOL SODIUM
     Indication: PULMONARY ARTERIAL HYPERTENSION
     Dosage: UNK
     Route: 042
  3. EPOPROSTENOL SODIUM. [Suspect]
     Active Substance: EPOPROSTENOL SODIUM
     Dosage: 12 NG/KG, PER MIN
     Route: 042

REACTIONS (7)
  - Pulmonary arterial pressure increased [Recovered/Resolved]
  - Low cardiac output syndrome [Recovered/Resolved]
  - Complication associated with device [Recovered/Resolved]
  - Lung disorder [Recovered/Resolved]
  - Respiratory tract haemorrhage [Recovered/Resolved]
  - Haemofiltration [Unknown]
  - Haemorrhage [Recovered/Resolved]
